FAERS Safety Report 4879567-5 (Version None)
Quarter: 2006Q1

REPORT INFORMATION
  Report Type: 
  Country: None (occurrence: None)
  Receive Date: 20060113
  Receipt Date: 20060106
  Transmission Date: 20060701
  Serious: Yes (Other)
  Sender: FDA-Public Use
  Company Number: US-JNJFOC-20060101413

PATIENT
  Sex: Female
  Weight: 113.38 kg

DRUGS (5)
  1. REMICADE [Suspect]
     Indication: DRUG USE FOR UNKNOWN INDICATION
     Route: 042
     Dates: start: 20050201, end: 20050801
  2. TRACLEER [Suspect]
     Route: 048
     Dates: start: 20050221
  3. TRACLEER [Suspect]
     Route: 048
     Dates: start: 20050221
  4. TRACLEER [Suspect]
     Indication: PULMONARY HYPERTENSION
     Route: 048
     Dates: start: 20050221
  5. SILDENAFIL [Concomitant]

REACTIONS (5)
  - CHEST PAIN [None]
  - DRUG INTERACTION [None]
  - DYSPNOEA [None]
  - FLUSHING [None]
  - OEDEMA [None]
